FAERS Safety Report 8098785-9 (Version None)
Quarter: 2012Q1

REPORT INFORMATION
  Report Type: 
  Country: None (occurrence: None)
  Receive Date: 20120131
  Receipt Date: 20120127
  Transmission Date: 20120608
  Serious: No
  Sender: FDA-Public Use
  Company Number: US-BAYER-2012-009544

PATIENT
  Age: 61 Year
  Sex: Female

DRUGS (3)
  1. ALEVE (CAPLET) [Suspect]
     Route: 048
  2. IBUPROFEN (ADVIL) [Concomitant]
  3. DILTIAZEM HCL [Concomitant]

REACTIONS (1)
  - SKIN ULCER [None]
